FAERS Safety Report 10898882 (Version 3)
Quarter: 2015Q2

REPORT INFORMATION
  Report Type: Report from Study
  Country: BE (occurrence: BE)
  Receive Date: 20150309
  Receipt Date: 20150424
  Transmission Date: 20150821
  Serious: Yes (Hospitalization)
  Sender: FDA-Public Use
  Company Number: BE-ASTRAZENECA-2015SE13361

PATIENT
  Age: 21818 Day
  Sex: Female

DRUGS (9)
  1. PANTOMED [Concomitant]
     Active Substance: DEXPANTHENOL
     Indication: PROPHYLAXIS
     Route: 048
     Dates: start: 20141029
  2. AZD2281 [Suspect]
     Active Substance: OLAPARIB
     Indication: HEAD AND NECK CANCER
     Route: 048
     Dates: start: 20141120, end: 20141120
  3. ANASTROZOLE. [Suspect]
     Active Substance: ANASTROZOLE
     Indication: HEAD AND NECK CANCER
     Route: 048
     Dates: start: 20141125, end: 20141211
  4. AZD2281 [Suspect]
     Active Substance: OLAPARIB
     Indication: HEAD AND NECK CANCER
     Route: 048
     Dates: start: 20141212, end: 20150202
  5. AZD2281 [Suspect]
     Active Substance: OLAPARIB
     Indication: HEAD AND NECK CANCER
     Route: 048
     Dates: start: 20141205, end: 20141211
  6. SERLAIN [Concomitant]
     Active Substance: SERTRALINE HYDROCHLORIDE
     Indication: ANXIETY
     Route: 048
  7. AZD2281 [Suspect]
     Active Substance: OLAPARIB
     Indication: HEAD AND NECK CANCER
     Route: 048
     Dates: start: 20141114, end: 20141119
  8. ALPRAZOLAM. [Concomitant]
     Active Substance: ALPRAZOLAM
     Indication: ANXIETY
     Route: 048
  9. DAFALGAN [Concomitant]
     Active Substance: ACETAMINOPHEN
     Indication: BACK PAIN
     Dosage: AS REQUIRED
     Route: 048

REACTIONS (1)
  - Arthralgia [Recovered/Resolved]

NARRATIVE: CASE EVENT DATE: 20150202
